FAERS Safety Report 23368051 (Version 1)
Quarter: 2024Q1

REPORT INFORMATION
  Report Type: Report from Study
  Country: US (occurrence: US)
  Receive Date: 20240105
  Receipt Date: 20240105
  Transmission Date: 20240410
  Serious: Yes (Hospitalization, Other)
  Sender: FDA-Public Use
  Company Number: US-ABBVIE-5569656

PATIENT
  Age: 79 Year
  Sex: Female
  Weight: 63 kg

DRUGS (13)
  1. VENCLEXTA [Suspect]
     Active Substance: VENETOCLAX
     Indication: Acute myeloid leukaemia
     Dosage: CYCLE 2 AZA/VENETODAX (OUTPATIENT); REDUCED DURATION OF VENETOCLAX TO 14 DAYS
     Route: 048
     Dates: start: 20210201
  2. VENCLEXTA [Suspect]
     Active Substance: VENETOCLAX
     Indication: Acute myeloid leukaemia
     Dosage: TAKE 4 TABLETS (400 MG TOTAL) BY MOUTH 1 (ONE) TIME EACH DAY FOR 14 DAYS, FOLLOWED BY  21 DAYS OF...
     Route: 048
     Dates: start: 20231010
  3. VENCLEXTA [Suspect]
     Active Substance: VENETOCLAX
     Indication: Acute myeloid leukaemia
     Dosage: CYCLE 1
     Route: 048
     Dates: start: 20201208, end: 20201228
  4. TYLENOL [Concomitant]
     Active Substance: ACETAMINOPHEN
     Indication: Product used for unknown indication
     Dosage: FORM STRENGTH 325 MILLIGRAM
  5. ZOCOR [Concomitant]
     Active Substance: SIMVASTATIN
     Indication: Product used for unknown indication
     Dosage: TAKE 1 TABLET (10 MG TOTAL) BY MOUTH AT BEDTIME.?FORM STRENGTH 10 MILLIGRAM
  6. SURFAK [Concomitant]
     Indication: Product used for unknown indication
     Dosage: TAKE BY MOUTH
     Route: 048
  7. ELIQUIS [Concomitant]
     Active Substance: APIXABAN
     Indication: Product used for unknown indication
     Dosage: TAKE 1 TABLET (2.5 MG TOTAL) BY MOUTH 2 (TWO) TIMES A DAY.?FORM STRENGTH: 2.5 MILLIGRAM
  8. CLINDAMYCIN [Concomitant]
     Active Substance: CLINDAMYCIN
     Indication: Product used for unknown indication
  9. ROMYCIN [Concomitant]
     Indication: Product used for unknown indication
     Dosage: 5 MG/GRAM (0.5 %) OPHTHALMIC OINTMENT
  10. MIRALAX [Concomitant]
     Active Substance: POLYETHYLENE GLYCOL 3350
     Indication: Product used for unknown indication
     Dosage: TAKE 17 G BY MOUTH 1 (ONE) TIME EACH DAY. 17 GRAM PACKET?FORM STRENGTH 17 GRAM
  11. AZACITIDINE [Concomitant]
     Active Substance: AZACITIDINE
     Indication: Product used for unknown indication
     Dosage: CYCLE 1
     Route: 065
     Dates: start: 20201208
  12. DEXAMETHASONE [Concomitant]
     Active Substance: DEXAMETHASONE
     Indication: Product used for unknown indication
     Dosage: 0.5MG/5 ML- ELIXIR
  13. ZOVIRAX [Concomitant]
     Active Substance: ACYCLOVIR
     Indication: Product used for unknown indication
     Dosage: FORM STRENGTH 400 MILLIGRAM

REACTIONS (3)
  - Pulmonary embolism [Unknown]
  - Rash [Unknown]
  - Cytopenia [Unknown]

NARRATIVE: CASE EVENT DATE: 20210204
